FAERS Safety Report 11139903 (Version 1)
Quarter: 2015Q2

REPORT INFORMATION
  Report Type: Spontaneous
  Country: US (occurrence: None)
  Receive Date: 20150526
  Receipt Date: 20150526
  Transmission Date: 20150821
  Serious: No
  Sender: FDA-Public Use
  Company Number: None

PATIENT
  Age: 80 Year
  Sex: Female
  Weight: 54.43 kg

DRUGS (5)
  1. NORVASC [Concomitant]
     Active Substance: AMLODIPINE BESYLATE
  2. PREMERIN [Concomitant]
  3. BUFFERIN [Concomitant]
     Active Substance: ASPIRIN
  4. BUFFERIN [Suspect]
     Active Substance: ASPIRIN
     Indication: ARTHRITIS
     Route: 048
  5. GAS-X [Concomitant]
     Active Substance: DIMETHICONE

REACTIONS (5)
  - Ocular discomfort [None]
  - Dizziness [None]
  - Feeling abnormal [None]
  - Product formulation issue [None]
  - Drug effect variable [None]
